FAERS Safety Report 4592055-9 (Version None)
Quarter: 2005Q1

REPORT INFORMATION
  Report Type: 
  Country: None (occurrence: None)
  Receive Date: 20050225
  Receipt Date: 20050218
  Transmission Date: 20050727
  Serious: Yes (Hospitalization)
  Sender: FDA-Public Use
  Company Number: FR-GLAXOSMITHKLINE-B0372740A

PATIENT
  Age: 66 Year
  Sex: Male

DRUGS (2)
  1. AUGMENTIN '125' [Suspect]
     Indication: BRONCHITIS
     Dosage: 1G TWICE PER DAY
     Route: 048
     Dates: start: 20041201, end: 20041201
  2. CLEANSING HERBS [Concomitant]
     Route: 048
     Dates: start: 20050101

REACTIONS (2)
  - CARDIAC FAILURE [None]
  - GENERALISED OEDEMA [None]
